FAERS Safety Report 9527048 (Version 1)
Quarter: 2013Q3

REPORT INFORMATION
  Report Type: Spontaneous
  Country: GB (occurrence: GB)
  Receive Date: 20130916
  Receipt Date: 20130916
  Transmission Date: 20140515
  Serious: Yes (Other)
  Sender: FDA-Public Use
  Company Number: GB-UCBSA-097284

PATIENT
  Age: 41 Year
  Sex: Female

DRUGS (2)
  1. KEPPRA [Suspect]
     Indication: EPILEPSY
     Dates: start: 20130707, end: 201307
  2. KEPPRA [Suspect]
     Indication: EPILEPSY
     Dates: start: 201307, end: 2013

REACTIONS (1)
  - Colitis ulcerative [Unknown]
